FAERS Safety Report 20060736 (Version 1)
Quarter: 2021Q4

REPORT INFORMATION
  Report Type: Other
  Country: PL (occurrence: PL)
  Receive Date: 20211112
  Receipt Date: 20211112
  Transmission Date: 20220303
  Serious: Yes (Other)
  Sender: FDA-Public Use
  Company Number: PL-CELLTRION INC.-2021PL014929

PATIENT

DRUGS (2)
  1. INFLIXIMAB [Suspect]
     Active Substance: INFLIXIMAB
     Indication: Product used for unknown indication
     Dosage: 100 MG (FIRST DOSE)
     Route: 065
  2. INFLIXIMAB [Suspect]
     Active Substance: INFLIXIMAB
     Dosage: 100 MG (SECOND DOSE)
     Route: 065

REACTIONS (2)
  - Anaphylactic shock [Unknown]
  - Off label use [Unknown]

NARRATIVE: CASE EVENT DATE: 20210923
